FAERS Safety Report 11805774 (Version 1)
Quarter: 2015Q4

REPORT INFORMATION
  Report Type: Spontaneous
  Country: US (occurrence: US)
  Receive Date: 20151207
  Receipt Date: 20151207
  Transmission Date: 20160305
  Serious: Yes (Hospitalization)
  Sender: FDA-Public Use
  Company Number: US-ACCORD-035983

PATIENT
  Age: 6 Year
  Sex: Male

DRUGS (2)
  1. METHOTREXATE [Suspect]
     Active Substance: METHOTREXATE
     Indication: UVEITIS
     Route: 058
  2. INFLIXIMAB [Suspect]
     Active Substance: INFLIXIMAB
     Indication: UVEITIS

REACTIONS (14)
  - Thrombocytopenia [Unknown]
  - Off label use [Unknown]
  - C-reactive protein increased [Unknown]
  - Hyperferritinaemia [Unknown]
  - Vomiting [Recovered/Resolved]
  - Splenomegaly [Unknown]
  - Diarrhoea [Recovered/Resolved]
  - Blood lactate dehydrogenase increased [Unknown]
  - Anaemia [Unknown]
  - Aspartate aminotransferase increased [Recovering/Resolving]
  - Alanine aminotransferase increased [Recovering/Resolving]
  - Myalgia [Unknown]
  - Pyrexia [Recovered/Resolved]
  - Abdominal tenderness [Unknown]
